FAERS Safety Report 18262515 (Version 1)
Quarter: 2020Q3

REPORT INFORMATION
  Report Type: Spontaneous
  Country: US (occurrence: US)
  Receive Date: 20200913
  Receipt Date: 20200913
  Transmission Date: 20201103
  Serious: Yes (Disabling)
  Sender: FDA-Public Use
  Company Number: None

PATIENT
  Age: 54 Year
  Sex: Female
  Weight: 72.45 kg

DRUGS (3)
  1. DUAVEE [Suspect]
     Active Substance: BAZEDOXIFENE ACETATE\ESTROGENS, CONJUGATED
     Indication: MENSTRUAL DISORDER
     Dosage: ?          QUANTITY:1 TABLET(S);?
     Route: 048
     Dates: start: 20160101, end: 20200804
  2. GABAPENTIN. [Concomitant]
     Active Substance: GABAPENTIN
  3. CYMBALTA [Concomitant]
     Active Substance: DULOXETINE HYDROCHLORIDE

REACTIONS (18)
  - Musculoskeletal stiffness [None]
  - Hiatus hernia [None]
  - Gastric disorder [None]
  - Nausea [None]
  - Intervertebral disc protrusion [None]
  - Spinal pain [None]
  - Bursitis [None]
  - Pneumonitis [None]
  - Pelvic pain [None]
  - Vision blurred [None]
  - Arthralgia [None]
  - Muscle spasms [None]
  - Dyspepsia [None]
  - Cervical spinal stenosis [None]
  - Gastritis [None]
  - Breast pain [None]
  - Fluid retention [None]
  - Dysstasia [None]

NARRATIVE: CASE EVENT DATE: 20171101
